FAERS Safety Report 19402336 (Version 2)
Quarter: 2022Q2

REPORT INFORMATION
  Report Type: Spontaneous
  Country: US (occurrence: US)
  Receive Date: 20210610
  Receipt Date: 20220602
  Transmission Date: 20220721
  Serious: No
  Sender: FDA-Public Use
  Company Number: US-COLLEGIUM PHARMACEUTICAL, INC.-2021CGM00422

PATIENT
  Sex: Male

DRUGS (2)
  1. XTAMPZA ER [Suspect]
     Active Substance: OXYCODONE
     Indication: Pain
     Dosage: 27 MG, 2X/DAY
     Route: 048
     Dates: start: 202103, end: 202104
  2. XTAMPZA ER [Suspect]
     Active Substance: OXYCODONE
     Dosage: UNK TAPER PLAN
     Route: 048

REACTIONS (7)
  - Toothache [Unknown]
  - Mastication disorder [Unknown]
  - Feeding disorder [Unknown]
  - Hypophagia [Unknown]
  - Fatigue [Unknown]
  - Drug ineffective [Unknown]
  - Wrong technique in product usage process [Unknown]

NARRATIVE: CASE EVENT DATE: 20210101
